FAERS Safety Report 4499776-7 (Version None)
Quarter: 2004Q4

REPORT INFORMATION
  Report Type: 
  Country: None (occurrence: None)
  Receive Date: 20041112
  Receipt Date: 20040603
  Transmission Date: 20050328
  Serious: Yes (Hospitalization, Other)
  Sender: FDA-Public Use
  Company Number: FR-AMGEN-UK078796

PATIENT
  Sex: Female
  Weight: 61 kg

DRUGS (2)
  1. ARANESP [Suspect]
     Indication: DIALYSIS
     Route: 042
     Dates: start: 20020711, end: 20030911
  2. NEORECORMON [Concomitant]
     Route: 058
     Dates: start: 20030918, end: 20040603

REACTIONS (4)
  - ANTI-ERYTHROPOIETIN ANTIBODY POSITIVE [None]
  - APLASIA PURE RED CELL [None]
  - COOMBS TEST POSITIVE [None]
  - HAEMOGLOBIN DECREASED [None]
